FAERS Safety Report 8059113-8 (Version None)
Quarter: 2012Q1

REPORT INFORMATION
  Report Type: 
  Country: None (occurrence: None)
  Receive Date: 20120120
  Receipt Date: 20120110
  Transmission Date: 20120608
  Serious: Yes (Hospitalization)
  Sender: FDA-Public Use
  Company Number: US-BAYER-2011-003483

PATIENT
  Age: 33 Year
  Sex: Female
  Weight: 117 kg

DRUGS (8)
  1. EFFEXOR XR [Concomitant]
  2. DROSPIRENONE AND ETHINYL ESTRADIOL [Suspect]
     Indication: HYPERTRICHOSIS
  3. IMITREX [Concomitant]
  4. TAMIFLU [Concomitant]
  5. HYDROCODONE BITARTRATE AND ACETAMINOPHEN [Concomitant]
  6. DROSPIRENONE AND ETHINYL ESTRADIOL [Suspect]
     Indication: CONTRACEPTION
     Dosage: UNK
     Route: 048
     Dates: start: 20090301, end: 20091216
  7. MAXALT [Concomitant]
  8. DESOGESTREL AND ETHINYL ESTRADIOL [Concomitant]

REACTIONS (5)
  - PAIN [None]
  - ANXIETY [None]
  - PULMONARY EMBOLISM [None]
  - DEPRESSION [None]
  - EMOTIONAL DISTRESS [None]
